FAERS Safety Report 5819205-8 (Version None)
Quarter: 2008Q3

REPORT INFORMATION
  Report Type: 
  Country: None (occurrence: None)
  Receive Date: 20080723
  Receipt Date: 20080714
  Transmission Date: 20090109
  Serious: Yes (Hospitalization)
  Sender: FDA-Public Use
  Company Number: US-GENENTECH-257122

PATIENT
  Sex: Female
  Weight: 100.5 kg

DRUGS (9)
  1. BEVACIZUMAB [Suspect]
     Indication: OVARIAN CANCER
     Dosage: 10 MG/KG, DAYS 1+15
     Route: 042
     Dates: start: 20071024
  2. ABRAXANE [Suspect]
     Indication: OVARIAN CANCER
     Dosage: 100 MG/M2, DAYS1,8,15
     Route: 042
     Dates: start: 20071024
  3. ADVIL [Concomitant]
     Indication: PAIN
     Route: 048
  4. MILK OF MAGNESIA [Concomitant]
     Indication: CONSTIPATION
     Route: 048
  5. VITAMIN E [Concomitant]
     Indication: VITAMIN SUPPLEMENTATION
  6. ZOFRAN [Concomitant]
     Indication: NAUSEA
     Dosage: 8 MG, PRN
  7. PHENERGAN HCL [Concomitant]
     Indication: NAUSEA
  8. LORTAB [Concomitant]
     Indication: PAIN
  9. COLACE [Concomitant]
     Indication: DIARRHOEA

REACTIONS (2)
  - ABDOMINAL PAIN [None]
  - PYREXIA [None]
